FAERS Safety Report 25653030 (Version 4)
Quarter: 2025Q3

REPORT INFORMATION
  Report Type: Spontaneous
  Country: US (occurrence: US)
  Receive Date: 20250807
  Receipt Date: 20250901
  Transmission Date: 20251021
  Serious: No
  Sender: ALEXION PHARMACEUTICALS
  Company Number: US-AstraZeneca-CH-00924223AP

PATIENT
  Sex: Male

DRUGS (1)
  1. AIRSUPRA [Suspect]
     Active Substance: ALBUTEROL SULFATE\BUDESONIDE
     Indication: Chronic obstructive pulmonary disease
     Route: 065

REACTIONS (6)
  - Device delivery system issue [Unknown]
  - Incorrect dose administered [Unknown]
  - Chronic obstructive pulmonary disease [Unknown]
  - Lung disorder [Not Recovered/Not Resolved]
  - Product after taste [Unknown]
  - Wrong technique in device usage process [Unknown]
